FAERS Safety Report 11996254 (Version 1)
Quarter: 2016Q1

REPORT INFORMATION
  Report Type: Spontaneous
  Country: US (occurrence: US)
  Receive Date: 20160203
  Receipt Date: 20160203
  Transmission Date: 20160526
  Serious: No
  Sender: FDA-Public Use
  Company Number: US-009507513-1602USA000588

PATIENT
  Age: 64 Year
  Sex: Male

DRUGS (3)
  1. NEUROTIN (ACETYLCARNITINE HYDROCHLORIDE) [Concomitant]
     Active Substance: ACETYLCARNITINE HYDROCHLORIDE
  2. XARELTO [Concomitant]
     Active Substance: RIVAROXABAN
     Dosage: 10 MG, UNK
  3. BELSOMRA [Suspect]
     Active Substance: SUVOREXANT
     Indication: INSOMNIA
     Dosage: UNK
     Route: 048

REACTIONS (1)
  - Mood altered [Recovered/Resolved]
